FAERS Safety Report 6875374-2 (Version None)
Quarter: 2010Q3

REPORT INFORMATION
  Report Type: 
  Country: None (occurrence: None)
  Receive Date: 20100727
  Receipt Date: 20100717
  Transmission Date: 20110219
  Serious: Yes (Other)
  Sender: FDA-Public Use
  Company Number: FR-JNJFOC-20100705592

PATIENT
  Age: 13 Month
  Sex: Male

DRUGS (11)
  1. LEUSTAT [Suspect]
     Indication: LANGERHANS' CELL HISTIOCYTOSIS
     Route: 042
  2. LEUSTAT [Suspect]
     Route: 042
  3. LEUSTAT [Suspect]
     Route: 042
  4. INFLIXIMAB [Suspect]
     Indication: LANGERHANS' CELL HISTIOCYTOSIS
     Route: 017
  5. CYTARABINE [Suspect]
     Indication: LANGERHANS' CELL HISTIOCYTOSIS
     Route: 042
  6. VINBLASTINE SULFATE [Suspect]
     Indication: LANGERHANS' CELL HISTIOCYTOSIS
     Route: 065
  7. CORTICOSTEROID [Suspect]
     Indication: LANGERHANS' CELL HISTIOCYTOSIS
     Route: 065
  8. METHOTREXATE [Suspect]
     Indication: LANGERHANS' CELL HISTIOCYTOSIS
     Route: 065
  9. NEUPOGEN [Concomitant]
     Route: 065
  10. ANTIEMETICS [Concomitant]
     Indication: VOMITING
     Route: 065
  11. SULFAMETHOXAZOLE AND TRIMETHOPRIM [Concomitant]
     Indication: ANTIFUNGAL PROPHYLAXIS
     Route: 065

REACTIONS (2)
  - NEUTROPENIA [None]
  - PYREXIA [None]
